FAERS Safety Report 9276394 (Version 1)
Quarter: 2013Q2

REPORT INFORMATION
  Report Type: Report from Study
  Country: CA (occurrence: CA)
  Receive Date: 20130507
  Receipt Date: 20130507
  Transmission Date: 20140414
  Serious: Yes (Hospitalization)
  Sender: FDA-Public Use
  Company Number: CA-JNJFOC-20130500265

PATIENT
  Age: 63 Year
  Sex: Female
  Weight: 103.8 kg

DRUGS (2)
  1. REMICADE [Suspect]
     Indication: RHEUMATOID ARTHRITIS
     Route: 042
     Dates: start: 20030101
  2. METHOTREXATE [Concomitant]
     Route: 048

REACTIONS (1)
  - Joint resurfacing surgery [Recovering/Resolving]
